FAERS Safety Report 8625846-5 (Version None)
Quarter: 2012Q3

REPORT INFORMATION
  Report Type: 
  Country: None (occurrence: None)
  Receive Date: 20120827
  Receipt Date: 20120131
  Transmission Date: 20120928
  Serious: No
  Sender: FDA-Public Use
  Company Number: US-JHP PHARMACEUTICALS, LLC-JHP201200084

PATIENT
  Sex: Female

DRUGS (1)
  1. DELESTROGEN [Suspect]
     Indication: INFERTILITY
     Dosage: EACH CYCLE 0.28 ML, THEN 0.43 ML, THEN 0.6 ML
     Route: 030

REACTIONS (1)
  - DRUG INEFFECTIVE FOR UNAPPROVED INDICATION [None]
